FAERS Safety Report 4553975-4 (Version None)
Quarter: 2005Q1

REPORT INFORMATION
  Report Type: 
  Country: None (occurrence: None)
  Receive Date: 20050118
  Receipt Date: 20041219
  Transmission Date: 20050727
  Serious: Yes (Death, Hospitalization)
  Sender: FDA-Public Use
  Company Number: PHEH2004US13613

PATIENT
  Age: 36 Year
  Sex: Male

DRUGS (2)
  1. GLEEVEC [Suspect]
     Indication: CHRONIC MYELOID LEUKAEMIA
     Dosage: UNK, UNK
     Route: 048
     Dates: start: 20020101
  2. PERCOCET [Suspect]
     Indication: BONE PAIN
     Dates: start: 20030301

REACTIONS (19)
  - ASTHENIA [None]
  - BLAST CELL CRISIS [None]
  - BLAST CRISIS IN MYELOGENOUS LEUKAEMIA [None]
  - BONE PAIN [None]
  - CHRONIC MYELOID LEUKAEMIA [None]
  - DENTAL CARIES [None]
  - DISEASE PROGRESSION [None]
  - DRUG INTERACTION [None]
  - DYSPNOEA [None]
  - ENDODONTIC PROCEDURE [None]
  - GENERAL PHYSICAL HEALTH DETERIORATION [None]
  - OEDEMA [None]
  - PAIN [None]
  - PLATELET COUNT DECREASED [None]
  - POST PROCEDURAL COMPLICATION [None]
  - TOOTH ABSCESS [None]
  - TOOTH REPAIR [None]
  - TOOTHACHE [None]
  - WHITE BLOOD CELL COUNT INCREASED [None]
